FAERS Safety Report 5450217-2 (Version None)
Quarter: 2007Q3

REPORT INFORMATION
  Report Type: 
  Country: None (occurrence: None)
  Receive Date: 20070912
  Receipt Date: 20070831
  Transmission Date: 20080115
  Serious: Yes (Hospitalization)
  Sender: FDA-Public Use
  Company Number: GB-PFIZER INC-2007073588

PATIENT
  Age: 62 Year
  Sex: Male

DRUGS (4)
  1. VIAGRA [Suspect]
     Indication: ERECTILE DYSFUNCTION
     Route: 048
  2. ASPIRIN [Concomitant]
  3. ATENOLOL [Concomitant]
  4. SIMVASTATIN [Concomitant]

REACTIONS (5)
  - ATRIAL FIBRILLATION [None]
  - COLD SWEAT [None]
  - DYSPNOEA [None]
  - MYOCARDIAL INFARCTION [None]
  - PAIN [None]
